FAERS Safety Report 4470259-3 (Version None)
Quarter: 2004Q4

REPORT INFORMATION
  Report Type: 
  Country: None (occurrence: None)
  Receive Date: 20041008
  Receipt Date: 20041005
  Transmission Date: 20050328
  Serious: Yes (Life-Threatening, Hospitalization)
  Sender: FDA-Public Use
  Company Number: IT-MERCK-0410ITA00014

PATIENT
  Age: 73 Year
  Sex: Male

DRUGS (5)
  1. ACENOCOUMAROL [Concomitant]
     Route: 048
  2. DIGOXIN [Concomitant]
     Route: 048
  3. RAMIPRIL [Concomitant]
     Route: 048
  4. VIOXX [Suspect]
     Indication: OSTEOARTHRITIS
     Route: 048
     Dates: start: 20040325, end: 20040328
  5. TAMSULOSIN HYDROCHLORIDE [Concomitant]
     Route: 048

REACTIONS (2)
  - HENOCH-SCHONLEIN PURPURA [None]
  - RENAL FAILURE ACUTE [None]
